FAERS Safety Report 6465966-7 (Version None)
Quarter: 2009Q4

REPORT INFORMATION
  Report Type: 
  Country: None (occurrence: None)
  Receive Date: 20091201
  Receipt Date: 20091201
  Transmission Date: 20100525
  Serious: Yes (Other)
  Sender: FDA-Public Use
  Company Number: None

PATIENT
  Sex: Female
  Weight: 49.8957 kg

DRUGS (1)
  1. BIOBALANCE BIO-IDENTICAL-HORMONE 150 MG., SHE WON'T GIVE ME NAME OF MA [Suspect]
     Indication: HORMONE LEVEL ABNORMAL
     Dates: start: 20080201

REACTIONS (5)
  - ALOPECIA [None]
  - BLOOD TESTOSTERONE INCREASED [None]
  - HAIR GROWTH ABNORMAL [None]
  - UTERINE LEIOMYOMA [None]
  - WEIGHT INCREASED [None]
